FAERS Safety Report 9240576 (Version 1)
Quarter: 2013Q1

REPORT INFORMATION
  Report Type: Spontaneous
  Country: US (occurrence: None)
  Receive Date: 20121120
  Receipt Date: 20121120
  Transmission Date: 20140127
  Serious: No
  Sender: FDA-Public Use
  Company Number: 1000039507

PATIENT
  Age: 54 Year
  Sex: Female

DRUGS (3)
  1. VIIBRYD [Suspect]
     Indication: DEPRESSION
     Dosage: 10MG (10MG, 1 IN 1 D,) ORAL
     Route: 048
     Dates: start: 201203, end: 2012
  2. VIIBRYD [Suspect]
     Indication: DEPRESSION
     Dosage: 40 MG (40 MG, 1 IN 1 D), ORAL
     Route: 048
     Dates: start: 2012, end: 201206
  3. BUPROPION (BUPROPION) (BUPROPION) [Concomitant]

REACTIONS (2)
  - Abnormal dreams [None]
  - Somnolence [None]
